FAERS Safety Report 10332497 (Version 1)
Quarter: 2014Q3

REPORT INFORMATION
  Report Type: Spontaneous
  Country: US (occurrence: US)
  Receive Date: 20140722
  Receipt Date: 20140722
  Transmission Date: 20150326
  Serious: No
  Sender: FDA-Public Use
  Company Number: US-ASTRAZENECA-2013SE67605

PATIENT
  Age: 47 Year
  Sex: Female
  Weight: 106.6 kg

DRUGS (6)
  1. TRAZODONE [Concomitant]
     Active Substance: TRAZODONE HYDROCHLORIDE
     Dosage: 100 TO 200MG PRN
     Dates: start: 2013
  2. ESTROGEN [Concomitant]
     Active Substance: ESTRONE\SUS SCROFA OVARY
     Indication: OESTROGEN REPLACEMENT THERAPY
     Dates: start: 2008
  3. SEROQUEL [Suspect]
     Active Substance: QUETIAPINE FUMARATE
     Indication: BIPOLAR I DISORDER
     Dosage: 200 TO 300MG DAILY
     Route: 048
     Dates: end: 20130828
  4. LAMICTAL [Concomitant]
     Active Substance: LAMOTRIGINE
     Indication: BIPOLAR DISORDER
     Dates: start: 2007
  5. SMALL BLUE OVAL PILL [Concomitant]
     Indication: BLOOD CHOLESTEROL ABNORMAL
     Dates: start: 201308
  6. WELLBUTRIN [Concomitant]
     Active Substance: BUPROPION HYDROCHLORIDE
     Indication: DEPRESSION
     Dates: start: 2007

REACTIONS (8)
  - Intentional product misuse [Unknown]
  - Weight increased [Unknown]
  - Feeling of relaxation [Unknown]
  - Blood glucose increased [Unknown]
  - Insomnia [Unknown]
  - Blood triglycerides increased [Unknown]
  - Lower respiratory tract infection [Unknown]
  - Hypersomnia [Unknown]

NARRATIVE: CASE EVENT DATE: 2013
